FAERS Safety Report 18098126 (Version 3)
Quarter: 2022Q1

REPORT INFORMATION
  Report Type: Report from Study
  Country: CA (occurrence: CA)
  Receive Date: 20200731
  Receipt Date: 20220104
  Transmission Date: 20220424
  Serious: Yes (Other)
  Sender: FDA-Public Use
  Company Number: CA-JNJFOC-20200737298

PATIENT
  Age: 15 Year
  Sex: Female
  Weight: 36.8 kg

DRUGS (4)
  1. REMICADE [Suspect]
     Active Substance: INFLIXIMAB
     Indication: Colitis ulcerative
     Route: 042
     Dates: start: 20200419
  2. REMICADE [Suspect]
     Active Substance: INFLIXIMAB
     Indication: Crohn^s disease
     Dosage: WEEK 0,1, 3 THEN Q 4 WEEKS THEREAFTER.
     Route: 042
     Dates: start: 20200504
  3. REMICADE [Suspect]
     Active Substance: INFLIXIMAB
     Dosage: CHANGED TREATMENT ON 23-DEC-2021
     Route: 042
  4. REMICADE [Suspect]
     Active Substance: INFLIXIMAB
     Route: 042

REACTIONS (1)
  - Haematochezia [Not Recovered/Not Resolved]

NARRATIVE: CASE EVENT DATE: 20200721
